FAERS Safety Report 25976046 (Version 2)
Quarter: 2025Q4

REPORT INFORMATION
  Report Type: Spontaneous
  Country: AU (occurrence: AU)
  Receive Date: 20251029
  Receipt Date: 20251110
  Transmission Date: 20260117
  Serious: Yes (Death, Hospitalization, Other)
  Sender: PFIZER
  Company Number: AU-PFIZER INC-PV202400037547

PATIENT
  Age: 29 Year
  Sex: Male

DRUGS (1)
  1. XYNTHA [Suspect]
     Active Substance: MOROCTOCOG ALFA
     Indication: Haemophilia
     Dosage: 4000 IU, 3X/DAY
     Route: 042

REACTIONS (2)
  - Death [Fatal]
  - Haemorrhage [Unknown]

NARRATIVE: CASE EVENT DATE: 20251027
